FAERS Safety Report 8779602 (Version 1)
Quarter: 2012Q4

REPORT INFORMATION
  Report Type: 
  Country: FR (occurrence: FR)
  Receive Date: 20120913
  Receipt Date: 20120913
  Transmission Date: 20130627
  Serious: Yes (Hospitalization)
  Sender: FDA-Public Use
  Company Number: FR-009507513-1201USA02362

PATIENT

DRUGS (11)
  1. ISENTRESS [Suspect]
     Indication: HIV INFECTION
     Dosage: 400 mg, bid
     Route: 048
     Dates: start: 20090427, end: 20111209
  2. SUSTIVA [Suspect]
     Indication: HIV INFECTION
     Dosage: 600 mg, qd
     Route: 048
     Dates: start: 20090427
  3. REYATAZ [Suspect]
     Indication: HIV INFECTION
     Dosage: 300 mg, qd
     Route: 048
     Dates: start: 20090427
  4. PLAVIX [Concomitant]
  5. ASPEGIC [Concomitant]
  6. KARDEGIC [Concomitant]
  7. ELISOR [Concomitant]
  8. SECTRAL 100 [Concomitant]
     Indication: HIV INFECTION
  9. COVERSYL (PERINDOPRIL ARGININE) [Concomitant]
  10. NORVIR [Suspect]
     Indication: HIV INFECTION
     Dosage: 100 mg, qd
     Route: 048
     Dates: start: 20090427
  11. BACTRIM [Suspect]

REACTIONS (6)
  - Cholestasis [Not Recovered/Not Resolved]
  - Nephrotic syndrome [Not Recovered/Not Resolved]
  - Hepatocellular injury [Not Recovered/Not Resolved]
  - Glomerulonephritis membranous [Not Recovered/Not Resolved]
  - Tubulointerstitial nephritis [Not Recovered/Not Resolved]
  - Eosinophilia [Not Recovered/Not Resolved]
